FAERS Safety Report 25046311 (Version 2)
Quarter: 2025Q2

REPORT INFORMATION
  Report Type: Other
  Country: JP (occurrence: JP)
  Receive Date: 20250306
  Receipt Date: 20250520
  Transmission Date: 20250716
  Serious: Yes (Other)
  Sender: EMD SERONO INC
  Company Number: JP-Merck Healthcare KGaA-2025009777

PATIENT
  Age: 90 Year
  Sex: Male

DRUGS (2)
  1. BAVENCIO [Suspect]
     Active Substance: AVELUMAB
     Indication: Renal cancer metastatic
  2. AXITINIB [Suspect]
     Active Substance: AXITINIB
     Indication: Renal cancer metastatic

REACTIONS (5)
  - Depressed level of consciousness [Unknown]
  - Respiratory paralysis [Recovering/Resolving]
  - Immune-mediated myositis [Recovering/Resolving]
  - Hepatic function abnormal [Recovering/Resolving]
  - Malaise [Unknown]
